FAERS Safety Report 5262282-6 (Version None)
Quarter: 2007Q1

REPORT INFORMATION
  Report Type: 
  Country: None (occurrence: None)
  Receive Date: 20070308
  Receipt Date: 20070308
  Transmission Date: 20070707
  Serious: Yes (Other)
  Sender: FDA-Public Use
  Company Number: None

PATIENT
  Sex: Female
  Weight: 27.6694 kg

DRUGS (1)
  1. ALPRAXOLAM 10MG [Suspect]
     Indication: PANIC ATTACK
     Dosage: 10 MG ONCE PO
     Route: 048
     Dates: start: 20070221, end: 20070221

REACTIONS (12)
  - ABNORMAL BEHAVIOUR [None]
  - ANGER [None]
  - APHASIA [None]
  - DISTURBANCE IN ATTENTION [None]
  - DIZZINESS [None]
  - ERUCTATION [None]
  - FEAR [None]
  - FEELING ABNORMAL [None]
  - HALLUCINATION, VISUAL [None]
  - HEADACHE [None]
  - INAPPROPRIATE AFFECT [None]
  - PSYCHOMOTOR HYPERACTIVITY [None]
